FAERS Safety Report 16089263 (Version 2)
Quarter: 2019Q1

REPORT INFORMATION
  Report Type: Spontaneous
  Country: JP (occurrence: JP)
  Receive Date: 20190319
  Receipt Date: 20190322
  Transmission Date: 20190418
  Serious: Yes (Life-Threatening, Other)
  Sender: FDA-Public Use
  Company Number: JP-PFIZER INC-2019115294

PATIENT
  Age: 40 Year
  Sex: Male

DRUGS (6)
  1. PERTUZUMAB. [Suspect]
     Active Substance: PERTUZUMAB
     Indication: CHEMOTHERAPY
     Dosage: 420 MG, EVERY 3 WEEKS (CYCLIC, SYSTEMIC THERAPY)
  2. TRASTUZUMAB. [Suspect]
     Active Substance: TRASTUZUMAB
     Indication: CHEMOTHERAPY
     Dosage: 6 MG/KG, EVERY 3 WEEKS (CYCLIC, SYSTEMIC THERAPY)
  3. TRASTUZUMAB. [Suspect]
     Active Substance: TRASTUZUMAB
     Indication: BREAST CANCER RECURRENT
     Dosage: 8 MG/KG, EVERY 3 WEEKS (CYCLIC, SYSTEMIC THERAPY)
  4. DOCETAXEL. [Suspect]
     Active Substance: DOCETAXEL
     Indication: CHEMOTHERAPY
  5. DOCETAXEL. [Suspect]
     Active Substance: DOCETAXEL
     Indication: BREAST CANCER RECURRENT
     Dosage: 75 MG/M2, EVERY 3 WEEKS (CYCLIC, SYSTEMIC THERAPY)
  6. PERTUZUMAB. [Suspect]
     Active Substance: PERTUZUMAB
     Indication: BREAST CANCER RECURRENT
     Dosage: 840 MG, EVERY 3 WEEKS (CYCLIC, SYSTEMIC THERAPY)

REACTIONS (3)
  - Alopecia [Unknown]
  - Febrile neutropenia [Unknown]
  - Neutropenia [Unknown]
